FAERS Safety Report 6387938-3 (Version None)
Quarter: 2009Q4

REPORT INFORMATION
  Report Type: 
  Country: None (occurrence: None)
  Receive Date: 20091001
  Receipt Date: 20091001
  Transmission Date: 20100525
  Serious: No
  Sender: FDA-Public Use
  Company Number: None

PATIENT
  Sex: Male
  Weight: 71.2147 kg

DRUGS (1)
  1. LIQUITEARS, POLYVINYL ALCOHOL 1.4% [Suspect]
     Indication: DRY EYE
     Dosage: 1 TO 2 DROPS IN EYE AS NEEDED
     Dates: start: 20090701, end: 20090801

REACTIONS (5)
  - EYE IRRITATION [None]
  - EYELID CYST [None]
  - HORDEOLUM [None]
  - VISION BLURRED [None]
  - VISUAL IMPAIRMENT [None]
